FAERS Safety Report 8465100-8 (Version None)
Quarter: 2012Q2

REPORT INFORMATION
  Report Type: 
  Country: None (occurrence: None)
  Receive Date: 20120626
  Receipt Date: 20120618
  Transmission Date: 20120825
  Serious: Yes (Hospitalization)
  Sender: FDA-Public Use
  Company Number: US-BAYER-2012-034635

PATIENT
  Age: 19 Year
  Sex: Female
  Weight: 58.186 kg

DRUGS (10)
  1. YAZ [Suspect]
     Indication: ACNE
  2. NEOSPORIN [BACITRACIN ZINC,NEOMYCIN SULFATE,POLYMYXIN B SULFATE] [Concomitant]
     Dosage: UNK
     Route: 061
     Dates: start: 20100312
  3. AMOXICILLIN AND CLAVULANATE POTASSIUM [Concomitant]
     Dosage: 500 MG, BID
     Route: 048
  4. YASMIN [Suspect]
     Indication: ACNE
  5. AMOXICILLIN [Concomitant]
     Dosage: 500 MG, 2 CAPSULES TID
     Route: 048
  6. HYDROCODONE BITARTRATE AND ACETAMINOPHEN [Concomitant]
     Indication: PAIN
     Dosage: 5 MG/500 MG 1-2 EVERY 4-6 HOURS AS NEEDED
     Route: 048
  7. METHYLPREDNISOLONE [Concomitant]
     Dosage: 4 MG, DOSEPAK
     Route: 048
  8. DROSPIRENONE AND ETHINYL ESTRADIOL [Suspect]
     Indication: ACNE
  9. AUGMENTIN '125' [Concomitant]
     Dosage: 500 MG, BID
     Route: 048
     Dates: start: 20100312
  10. TD [DIPHTHERIA AND TETANUS VACCINES] [Concomitant]
     Dosage: 0.5 ML, BOOSTER
     Route: 030
     Dates: start: 20100312

REACTIONS (3)
  - SUPERIOR SAGITTAL SINUS THROMBOSIS [None]
  - INJURY [None]
  - PAIN [None]
